FAERS Safety Report 8206929-0 (Version None)
Quarter: 2012Q1

REPORT INFORMATION
  Report Type: 
  Country: None (occurrence: None)
  Receive Date: 20120312
  Receipt Date: 20120224
  Transmission Date: 20120608
  Serious: Yes (Other)
  Sender: FDA-Public Use
  Company Number: IND1-JP-2012-0006

PATIENT
  Age: 4 Day
  Sex: Male

DRUGS (1)
  1. INDOMETHACIN [Suspect]
     Indication: PATENT DUCTUS ARTERIOSUS
     Dosage: UNK, ORAL
     Route: 048

REACTIONS (3)
  - ILEAL PERFORATION [None]
  - RESPIRATORY DISTRESS [None]
  - PNEUMOPERITONEUM [None]
